FAERS Safety Report 22540463 (Version 1)
Quarter: 2023Q2

REPORT INFORMATION
  Report Type: Report from Study
  Country: CN (occurrence: CN)
  Receive Date: 20230609
  Receipt Date: 20230609
  Transmission Date: 20230722
  Serious: Yes (Death)
  Sender: FDA-Public Use
  Company Number: CN-PFIZER INC-202300211446

PATIENT
  Age: 3 Day
  Sex: Male
  Weight: 0.85 kg

DRUGS (4)
  1. FLUCONAZOLE [Suspect]
     Active Substance: FLUCONAZOLE
     Indication: Antifungal treatment
     Dosage: 12 MG/KG, DAILY
  2. AMPHOTERICIN B [Suspect]
     Active Substance: AMPHOTERICIN B
     Indication: Antifungal treatment
     Dosage: 0.1 MG/KG, DAILY
  3. AMPHOTERICIN B [Suspect]
     Active Substance: AMPHOTERICIN B
     Dosage: INCREASED BY 0.5 MG/(KG. D) FROM THE SECOND DAY, AND THE DOSE WAS INCREASED TO THE MAINTENANCE DOSE
  4. MEROPENEM [Concomitant]
     Active Substance: MEROPENEM
     Indication: Antifungal treatment
     Dosage: UNK

REACTIONS (1)
  - Drug ineffective [Fatal]
